FAERS Safety Report 23511586 (Version 2)
Quarter: 2024Q1

REPORT INFORMATION
  Report Type: Spontaneous
  Country: ES (occurrence: ES)
  Receive Date: 20240212
  Receipt Date: 20240221
  Transmission Date: 20240410
  Serious: Yes (Other)
  Sender: FDA-Public Use
  Company Number: None

PATIENT
  Age: 7 Year
  Sex: Female

DRUGS (4)
  1. MYCOPHENOLATE MOFETIL [Suspect]
     Active Substance: MYCOPHENOLATE MOFETIL
     Indication: Immunosuppressant drug therapy
     Dosage: 1 GRAM, BID (EVERY 12 HOUR)
     Route: 065
  2. TACROLIMUS [Suspect]
     Active Substance: TACROLIMUS
     Indication: Immunosuppressant drug therapy
     Dosage: UNK (REDUCED DOSE)
     Route: 065
  3. TACROLIMUS [Suspect]
     Active Substance: TACROLIMUS
     Dosage: 2.2 MILLIGRAM, BID (EVERY 12 HOUR)
     Route: 065
  4. FLUDROCORTISONE [Suspect]
     Active Substance: FLUDROCORTISONE
     Indication: Immunosuppressant drug therapy
     Dosage: 0.01 MILLIGRAM, TID (EVERY 8 HOURS)
     Route: 065

REACTIONS (5)
  - Immunosuppressant drug level increased [Unknown]
  - Dientamoeba infection [Unknown]
  - Gastroenteritis sapovirus [Recovered/Resolved]
  - Sapovirus infection [Unknown]
  - Diarrhoea [Unknown]
